FAERS Safety Report 7008024-5 (Version None)
Quarter: 2010Q3

REPORT INFORMATION
  Report Type: 
  Country: None (occurrence: None)
  Receive Date: 20100922
  Receipt Date: 20100909
  Transmission Date: 20110219
  Serious: Yes (Other)
  Sender: FDA-Public Use
  Company Number: PHBS2009GB00998

PATIENT
  Age: 28 Year
  Sex: Male

DRUGS (2)
  1. DICLOFENAC SODIUM [Suspect]
     Dosage: 75 MG, BID
     Route: 065
  2. OMEPRAZOLE [Concomitant]
     Dosage: 20 MG, BID

REACTIONS (2)
  - GASTROINTESTINAL TRACT MUCOSAL PIGMENTATION [None]
  - GASTROINTESTINAL ULCER [None]
